FAERS Safety Report 11928301 (Version 1)
Quarter: 2016Q1

REPORT INFORMATION
  Report Type: Report from Study
  Country: CN (occurrence: CN)
  Receive Date: 20160119
  Receipt Date: 20160119
  Transmission Date: 20160526
  Serious: Yes (Other)
  Sender: FDA-Public Use
  Company Number: CN-BRISTOL-MYERS SQUIBB COMPANY-BMS-2016-002782

PATIENT
  Sex: Female

DRUGS (1)
  1. CETUXIMAB [Suspect]
     Active Substance: CETUXIMAB
     Indication: PRODUCT USED FOR UNKNOWN INDICATION
     Dosage: 500 MG/M2, Q2WK
     Route: 041
     Dates: start: 20141225

REACTIONS (4)
  - Abdominal pain upper [Unknown]
  - Hydrothorax [Unknown]
  - Abdominal distension [Unknown]
  - Diarrhoea [Unknown]
